FAERS Safety Report 4548522-7 (Version None)
Quarter: 2005Q1

REPORT INFORMATION
  Report Type: 
  Country: None (occurrence: None)
  Receive Date: 20050110
  Receipt Date: 20041230
  Transmission Date: 20050727
  Serious: Yes (Death, Hospitalization)
  Sender: FDA-Public Use
  Company Number: FR-GLAXOSMITHKLINE-B0363572A

PATIENT
  Age: 82 Year
  Sex: Female

DRUGS (11)
  1. AUGMENTIN '125' [Suspect]
     Indication: SUPERINFECTION LUNG
     Dosage: 3G PER DAY
     Route: 042
     Dates: end: 20041109
  2. RIFADIN [Suspect]
     Indication: SUPERINFECTION LUNG
     Dosage: 1.2G PER DAY
     Route: 042
     Dates: end: 20041128
  3. VANCOMYCIN [Suspect]
     Dosage: 1G PER DAY
     Route: 042
     Dates: start: 20041015, end: 20041128
  4. LOVENOX [Concomitant]
     Route: 065
  5. LASILIX [Concomitant]
     Route: 065
  6. MORPHINE [Concomitant]
     Route: 065
  7. ACETAMINOPHEN [Concomitant]
     Route: 065
  8. STABLON [Concomitant]
     Route: 065
  9. APROVEL [Concomitant]
     Route: 065
  10. FORLAX [Concomitant]
     Route: 065
  11. COZAAR [Concomitant]
     Route: 065

REACTIONS (2)
  - OBSTRUCTIVE AIRWAYS DISORDER [None]
  - RASH ERYTHEMATOUS [None]
